FAERS Safety Report 24424046 (Version 1)
Quarter: 2024Q4

REPORT INFORMATION
  Report Type: Spontaneous
  Country: US (occurrence: US)
  Receive Date: 20241010
  Receipt Date: 20241010
  Transmission Date: 20250114
  Serious: Yes (Other)
  Sender: APOTEX
  Company Number: US-APOTEX-2024AP011698

PATIENT
  Age: 40 Year
  Sex: Female

DRUGS (3)
  1. ZOLEDRONIC ACID [Suspect]
     Active Substance: ZOLEDRONIC ACID
     Indication: Hypercalcaemia
     Dosage: UNK
     Route: 065
  2. AMPICILLIN SODIUM\SULBACTAM SODIUM [Concomitant]
     Active Substance: AMPICILLIN SODIUM\SULBACTAM SODIUM
     Indication: Pneumonia aspiration
     Dosage: UNK
     Route: 065
  3. DIPHENHYDRAMINE;PROMETHAZINE [Concomitant]
     Indication: Nausea
     Dosage: UNK
     Route: 065

REACTIONS (2)
  - Generalised tonic-clonic seizure [Unknown]
  - Hypocalcaemia [Unknown]
